FAERS Safety Report 12135855 (Version 4)
Quarter: 2016Q3

REPORT INFORMATION
  Report Type: Report from Study
  Country: US (occurrence: US)
  Receive Date: 20160302
  Receipt Date: 20160924
  Transmission Date: 20161109
  Serious: No
  Sender: FDA-Public Use
  Company Number: PHEH2016US005017

PATIENT
  Age: 62 Year
  Sex: Female

DRUGS (1)
  1. COSENTYX [Suspect]
     Active Substance: SECUKINUMAB
     Indication: PSORIASIS
     Dosage: 300 MG, QMO
     Route: 058
     Dates: start: 20160215

REACTIONS (9)
  - Ear infection [Unknown]
  - Influenza like illness [Recovered/Resolved]
  - Headache [Unknown]
  - Psoriasis [Unknown]
  - Pain [Unknown]
  - Otitis externa [Unknown]
  - Dizziness [Unknown]
  - Sinus disorder [Unknown]
  - Nausea [Unknown]

NARRATIVE: CASE EVENT DATE: 20160225
